FAERS Safety Report 4578113-3 (Version None)
Quarter: 2005Q1

REPORT INFORMATION
  Report Type: 
  Country: None (occurrence: None)
  Receive Date: 20050209
  Receipt Date: 20050128
  Transmission Date: 20050727
  Serious: Yes (Hospitalization)
  Sender: FDA-Public Use
  Company Number: 2004227836ES

PATIENT
  Age: 30 Year
  Sex: Female
  Weight: 69 kg

DRUGS (7)
  1. SOMAVERT [Suspect]
     Indication: ACROMEGALY
     Dosage: 10 MG (10 MG, 1 IN 1 D), SUBCUTANEOUS
     Route: 058
     Dates: start: 20040207, end: 20040728
  2. OMEPRAZOLE [Concomitant]
  3. ACETAMINOPHEN [Concomitant]
  4. ATORVASTATIN (ATORVASTATIN) [Concomitant]
  5. CYCLO-PROGYNOVA (ESTRADIOL VALERATE, LEVONORGESTREL) [Concomitant]
  6. LEVOTHYROXINE SODIUM [Concomitant]
  7. DEXIBUPROFEN (DEXIBUPROFEN) [Concomitant]

REACTIONS (2)
  - DRUG TOXICITY [None]
  - HEPATITIS CHOLESTATIC [None]
